FAERS Safety Report 7134843-0 (Version None)
Quarter: 2010Q4

REPORT INFORMATION
  Report Type: 
  Country: None (occurrence: None)
  Receive Date: 20101203
  Receipt Date: 20101129
  Transmission Date: 20110411
  Serious: Yes (Death)
  Sender: FDA-Public Use
  Company Number: US-CELGENEUS-163-21880-10110708

PATIENT
  Sex: Male

DRUGS (4)
  1. REVLIMID [Suspect]
     Indication: MYELODYSPLASTIC SYNDROME
     Route: 048
     Dates: start: 20080301
  2. REVLIMID [Suspect]
     Route: 048
     Dates: start: 20080401
  3. REVLIMID [Suspect]
     Route: 048
     Dates: start: 20100629, end: 20100922
  4. PREDNISONE [Concomitant]
     Route: 065
     Dates: start: 20100923, end: 20101001

REACTIONS (3)
  - ACUTE MYELOID LEUKAEMIA [None]
  - LUNG INFILTRATION [None]
  - MYELODYSPLASTIC SYNDROME TRANSFORMATION [None]
